FAERS Safety Report 12647850 (Version 1)
Quarter: 2016Q3

REPORT INFORMATION
  Report Type: Spontaneous
  Country: CA (occurrence: CA)
  Receive Date: 20160812
  Receipt Date: 20160812
  Transmission Date: 20161109
  Serious: Yes (Life-Threatening, Hospitalization)
  Sender: FDA-Public Use
  Company Number: CA-MYLANLABS-2016M1033377

PATIENT

DRUGS (4)
  1. AMITRIPTYLINE [Interacting]
     Active Substance: AMITRIPTYLINE
     Indication: DEPRESSION
     Dosage: AT BEDTIME
     Route: 048
  2. AMITRIPTYLINE [Interacting]
     Active Substance: AMITRIPTYLINE
     Dosage: APPROXIMATELY 60 TABLETS
     Route: 048
  3. DESVENLAFAXINE SUCCINATE [Interacting]
     Active Substance: DESVENLAFAXINE SUCCINATE
     Dosage: APPROXIMATELY 60 TABLETS
     Route: 048
  4. DESVENLAFAXINE SUCCINATE [Suspect]
     Active Substance: DESVENLAFAXINE SUCCINATE
     Indication: DEPRESSION
     Dosage: 100MG DAILY
     Route: 048

REACTIONS (8)
  - Electrocardiogram QRS complex prolonged [Recovering/Resolving]
  - Mydriasis [Unknown]
  - Dry skin [Unknown]
  - Suicide attempt [Unknown]
  - Drug interaction [Unknown]
  - Intentional overdose [Unknown]
  - Electrocardiogram QT prolonged [Recovered/Resolved]
  - Depressed level of consciousness [Unknown]
